FAERS Safety Report 25237535 (Version 2)
Quarter: 2025Q2

REPORT INFORMATION
  Report Type: Spontaneous
  Country: US (occurrence: None)
  Receive Date: 20250425
  Receipt Date: 20250523
  Transmission Date: 20250717
  Serious: Yes (Other)
  Sender: MDD OPERATIONS
  Company Number: US-MDD US Operations-MDD202405-001688

PATIENT
  Age: 74 Year
  Sex: Female

DRUGS (5)
  1. APOKYN [Suspect]
     Active Substance: APOMORPHINE HYDROCHLORIDE
     Indication: Parkinson^s disease
     Route: 058
     Dates: start: 20240124
  2. APOKYN [Suspect]
     Active Substance: APOMORPHINE HYDROCHLORIDE
     Route: 058
  3. APOKYN [Suspect]
     Active Substance: APOMORPHINE HYDROCHLORIDE
     Route: 058
  4. CARBIDOPA [Concomitant]
     Active Substance: CARBIDOPA
  5. LEVODOPA [Concomitant]
     Active Substance: LEVODOPA

REACTIONS (5)
  - Dystonia [Not Recovered/Not Resolved]
  - Condition aggravated [Unknown]
  - Dyskinesia [Not Recovered/Not Resolved]
  - Fall [Unknown]
  - Therapeutic response shortened [Unknown]
